FAERS Safety Report 21895260 (Version 2)
Quarter: 2023Q2

REPORT INFORMATION
  Report Type: Report from Study
  Country: JP (occurrence: JP)
  Receive Date: 20230123
  Receipt Date: 20230630
  Transmission Date: 20230722
  Serious: Yes (Hospitalization, Other)
  Sender: FDA-Public Use
  Company Number: JP-002147023-NVSJ2022JP095538

PATIENT
  Age: 85 Year
  Sex: Male

DRUGS (2)
  1. SCEMBLIX [Suspect]
     Active Substance: ASCIMINIB HYDROCHLORIDE
     Indication: Chronic myeloid leukaemia
     Dosage: 20 MG
     Route: 048
     Dates: start: 20220721, end: 20220817
  2. SCEMBLIX [Suspect]
     Active Substance: ASCIMINIB HYDROCHLORIDE
     Dosage: 8.57 MG
     Route: 048
     Dates: start: 20221024, end: 20221129

REACTIONS (3)
  - Cardiac failure [Not Recovered/Not Resolved]
  - Electrocardiogram QT prolonged [Unknown]
  - Malaise [Unknown]

NARRATIVE: CASE EVENT DATE: 20220701
